FAERS Safety Report 9717090 (Version 3)
Quarter: 2015Q3

REPORT INFORMATION
  Report Type: Spontaneous
  Country: US (occurrence: US)
  Receive Date: 20131127
  Receipt Date: 20150803
  Transmission Date: 20151125
  Serious: No
  Sender: FDA-Public Use
  Company Number: US-GILEAD-2009-0020038

PATIENT
  Age: 66 Year
  Sex: Male
  Weight: 86.18 kg

DRUGS (10)
  1. PLAVIX [Concomitant]
     Active Substance: CLOPIDOGREL BISULFATE
  2. LASIX [Concomitant]
     Active Substance: FUROSEMIDE
  3. LETAIRIS [Suspect]
     Active Substance: AMBRISENTAN
     Indication: PULMONARY ARTERIAL HYPERTENSION
     Route: 047
     Dates: start: 20090126
  4. DIOVAN [Concomitant]
     Active Substance: VALSARTAN
  5. IMDUR [Concomitant]
     Active Substance: ISOSORBIDE MONONITRATE
  6. ALBUTEROL INHALER [Concomitant]
     Active Substance: ALBUTEROL
  7. ZETIA [Concomitant]
     Active Substance: EZETIMIBE
  8. COREG [Concomitant]
     Active Substance: CARVEDILOL
  9. PREDNISONE. [Concomitant]
     Active Substance: PREDNISONE
  10. COUMADIN [Concomitant]
     Active Substance: WARFARIN SODIUM

REACTIONS (3)
  - Dyspnoea [Unknown]
  - Oedema [Unknown]
  - Insomnia [Unknown]
